FAERS Safety Report 6773572-X (Version None)
Quarter: 2010Q2

REPORT INFORMATION
  Report Type: 
  Country: None (occurrence: None)
  Receive Date: 20100611
  Receipt Date: 20100604
  Transmission Date: 20101027
  Serious: Yes (Hospitalization, Other)
  Sender: FDA-Public Use
  Company Number: 2010SP031888

PATIENT
  Age: 21 Year
  Sex: Female

DRUGS (1)
  1. NUVARING [Suspect]
     Indication: CONTRACEPTION
     Dates: start: 20081001

REACTIONS (8)
  - DIZZINESS [None]
  - HEADACHE [None]
  - LOSS OF CONSCIOUSNESS [None]
  - NASOPHARYNGITIS [None]
  - PNEUMONIA PRIMARY ATYPICAL [None]
  - PULMONARY EMBOLISM [None]
  - PULMONARY INFARCTION [None]
  - RESPIRATORY TRACT INFECTION [None]
